FAERS Safety Report 4323080-0 (Version None)
Quarter: 2004Q1

REPORT INFORMATION
  Report Type: 
  Country: None (occurrence: None)
  Receive Date: 20040322
  Receipt Date: 20040308
  Transmission Date: 20041129
  Serious: Yes (Hospitalization, Disabling, Other)
  Sender: FDA-Public Use
  Company Number: 2004016043

PATIENT
  Age: 70 Year
  Sex: Male
  Weight: 79.3795 kg

DRUGS (9)
  1. LIPITOR [Suspect]
     Indication: BLOOD CHOLESTEROL INCREASED
     Dosage: 10 MG (DAILY); ORAL
     Route: 048
     Dates: start: 20031101, end: 20040101
  2. INSULIN [Concomitant]
  3. TAMSULOSIN [Concomitant]
  4. RAMIPRIL [Concomitant]
  5. HYDROCHLOROTHIAZIDE [Concomitant]
  6. METOPROLOL [Concomitant]
  7. LATANOPROST [Concomitant]
  8. LANSOPRAZOLE [Concomitant]
  9. IPRATROPIUM BROMIDE [Concomitant]

REACTIONS (3)
  - DIFFICULTY IN WALKING [None]
  - MUSCULAR WEAKNESS [None]
  - PARKINSON'S DISEASE [None]
